FAERS Safety Report 12041776 (Version 3)
Quarter: 2016Q3

REPORT INFORMATION
  Report Type: Spontaneous
  Country: US (occurrence: US)
  Receive Date: 20160208
  Receipt Date: 20160803
  Transmission Date: 20161109
  Serious: Yes (Other)
  Sender: FDA-Public Use
  Company Number: US-BAYER-2016-021993

PATIENT
  Age: 53 Year
  Sex: Male
  Weight: 87.75 kg

DRUGS (18)
  1. CIPRO [Suspect]
     Active Substance: CIPROFLOXACIN HYDROCHLORIDE
     Indication: URINARY TRACT INFECTION
     Dosage: UNK
     Dates: start: 20060802
  2. GABAPENTIN. [Concomitant]
     Active Substance: GABAPENTIN
     Indication: NEUROPATHY PERIPHERAL
     Dosage: 600 MG, QD
  3. ZESTRIL [Concomitant]
     Active Substance: LISINOPRIL
     Dosage: UNK
  4. CIPRO [Suspect]
     Active Substance: CIPROFLOXACIN HYDROCHLORIDE
     Indication: URINARY TRACT INFECTION
     Dosage: 1000 MG, UNK
     Dates: start: 20060405
  5. LIPITOR [Concomitant]
     Active Substance: ATORVASTATIN CALCIUM
     Dosage: UNK
  6. PHENERGAN [Concomitant]
     Active Substance: PROMETHAZINE HYDROCHLORIDE
     Dosage: UNK
  7. ENBREL [Concomitant]
     Active Substance: ETANERCEPT
     Dosage: UNK
  8. CIPRO [Suspect]
     Active Substance: CIPROFLOXACIN HYDROCHLORIDE
     Indication: URINARY TRACT INFECTION
     Dosage: 500 MG, UNK
     Dates: start: 20051101
  9. LORTAB [Concomitant]
     Active Substance: ACETAMINOPHEN\HYDROCODONE BITARTRATE
     Dosage: UNK
  10. LEVAQUIN [Suspect]
     Active Substance: LEVOFLOXACIN
     Indication: URETERIC DILATATION
     Dosage: UNK
     Dates: start: 20060802
  11. MOBIC [Concomitant]
     Active Substance: MELOXICAM
     Dosage: UNK
  12. AVELOX [Suspect]
     Active Substance: MOXIFLOXACIN HYDROCHLORIDE
     Dosage: UNK
  13. PLAVIX [Concomitant]
     Active Substance: CLOPIDOGREL BISULFATE
     Indication: CARDIAC DISORDER
     Dosage: 150 MG, UNK
     Dates: start: 2007
  14. ACETYLSALICYLIC ACID({=100 MG) [Concomitant]
     Active Substance: ASPIRIN
     Dosage: UNK
  15. COUMADIN [Concomitant]
     Active Substance: WARFARIN SODIUM
     Dosage: UNK
  16. LYRICA [Concomitant]
     Active Substance: PREGABALIN
     Dosage: UNK
  17. LASIX [Concomitant]
     Active Substance: FUROSEMIDE
     Dosage: UNK
  18. NEXIUM [Concomitant]
     Active Substance: ESOMEPRAZOLE MAGNESIUM
     Dosage: UNK

REACTIONS (8)
  - Skin injury [None]
  - Neuropathy peripheral [None]
  - Nervous system disorder [None]
  - Cardiovascular disorder [None]
  - Pain [None]
  - Neuropathy peripheral [None]
  - Musculoskeletal injury [None]
  - Mental disorder [None]

NARRATIVE: CASE EVENT DATE: 20070801
